FAERS Safety Report 6423437-8 (Version None)
Quarter: 2009Q4

REPORT INFORMATION
  Report Type: 
  Country: None (occurrence: None)
  Receive Date: 20091102
  Receipt Date: 20091022
  Transmission Date: 20100525
  Serious: Yes (Hospitalization)
  Sender: FDA-Public Use
  Company Number: B0591544A

PATIENT
  Sex: Female
  Weight: 42.1 kg

DRUGS (9)
  1. VALTREX [Suspect]
     Indication: HERPES ZOSTER
     Dosage: 500MG THREE TIMES PER WEEK
     Route: 048
     Dates: start: 20090815, end: 20090901
  2. ZYLORIC [Suspect]
     Indication: DRUG USE FOR UNKNOWN INDICATION
     Dosage: 100MG PER DAY
     Route: 048
     Dates: end: 20090831
  3. ZYLORIC [Suspect]
     Dosage: 100MG PER DAY
     Route: 048
     Dates: start: 20090903
  4. METHYCOBAL [Concomitant]
     Dosage: 1500MG PER DAY
     Route: 048
     Dates: end: 20090831
  5. METHYCOBAL [Concomitant]
     Dosage: 1500MG PER DAY
     Route: 048
     Dates: start: 20090903
  6. BERAPROST SODIUM [Concomitant]
     Dosage: 40MCG PER DAY
     Route: 048
     Dates: end: 20090831
  7. BERAPROST SODIUM [Concomitant]
     Dosage: 40MCG PER DAY
     Route: 048
     Dates: start: 20090903
  8. MYSLEE [Concomitant]
     Dosage: 10MG PER DAY
     Route: 048
     Dates: end: 20090831
  9. MYSLEE [Concomitant]
     Dosage: 10MG PER DAY
     Route: 048
     Dates: start: 20090903

REACTIONS (27)
  - ALANINE AMINOTRANSFERASE DECREASED [None]
  - ALTERED STATE OF CONSCIOUSNESS [None]
  - APHASIA [None]
  - BLOOD ALKALINE PHOSPHATASE INCREASED [None]
  - BLOOD CREATININE INCREASED [None]
  - BLOOD LACTATE DEHYDROGENASE INCREASED [None]
  - BLOOD PHOSPHORUS INCREASED [None]
  - BLOOD UREA [None]
  - BLOOD URIC ACID INCREASED [None]
  - CEREBRAL INFARCTION [None]
  - CREATININE RENAL CLEARANCE DECREASED [None]
  - DISORIENTATION [None]
  - DIZZINESS [None]
  - DYSARTHRIA [None]
  - DYSLALIA [None]
  - FEELING ABNORMAL [None]
  - GAIT DISTURBANCE [None]
  - GAMMA-GLUTAMYLTRANSFERASE INCREASED [None]
  - GASTROINTESTINAL DISORDER [None]
  - HAEMOGLOBIN DECREASED [None]
  - HYPOPHAGIA [None]
  - MEAN CELL VOLUME INCREASED [None]
  - RED BLOOD CELL COUNT DECREASED [None]
  - SOMNOLENCE [None]
  - TOXIC ENCEPHALOPATHY [None]
  - VASCULAR CALCIFICATION [None]
  - WHITE BLOOD CELL COUNT DECREASED [None]
